FAERS Safety Report 17546997 (Version 3)
Quarter: 2020Q2

REPORT INFORMATION
  Report Type: Spontaneous
  Country: US (occurrence: US)
  Receive Date: 20200316
  Receipt Date: 20200617
  Transmission Date: 20200713
  Serious: No
  Sender: FDA-Public Use
  Company Number: US-PFIZER INC-2019130963

PATIENT
  Age: 59 Year
  Sex: Male
  Weight: 133.3 kg

DRUGS (12)
  1. LYRICA [Suspect]
     Active Substance: PREGABALIN
     Indication: PAIN
     Dosage: 50 MG, TWICE DAILY (IN THE MORNING AND IN THE EVENING)
     Route: 048
     Dates: start: 2017
  2. LYRICA [Suspect]
     Active Substance: PREGABALIN
     Dosage: 100 MG, TWICE DAILY (2 IN THE MORNING AND 2 AT NIGHT)
     Route: 048
  3. FENTANYL. [Concomitant]
     Active Substance: FENTANYL
     Indication: PAIN
     Dosage: 50 MG, EVERY 72 HOURS
     Dates: start: 2016
  4. FENTANYL. [Concomitant]
     Active Substance: FENTANYL
     Indication: PAIN MANAGEMENT
     Dosage: 37 MG, EVERY 72 HOURS
  5. OXYCODONE [Concomitant]
     Active Substance: OXYCODONE
     Indication: PAIN
     Dosage: UNK
  6. LYRICA [Suspect]
     Active Substance: PREGABALIN
     Indication: NEURALGIA
     Dosage: 50 MG, THRICE DAILY
     Route: 048
     Dates: end: 20190705
  7. FENTANYL. [Concomitant]
     Active Substance: FENTANYL
     Dosage: 37 UG, UNK(ONE 12MCG FENTANYL PATCH AND ONE 25MCG FENTANYL PATCH)
  8. LYRICA [Suspect]
     Active Substance: PREGABALIN
     Dosage: 150 MG, DAILY (100 MG AT NIGHT AND 50 MG IN THE MORNING)
     Route: 048
  9. LYRICA [Suspect]
     Active Substance: PREGABALIN
     Dosage: 150 MG, TWICE DAILY
     Route: 048
     Dates: end: 202006
  10. FENTANYL. [Concomitant]
     Active Substance: FENTANYL
     Dosage: 37 UG, EVERY 3 DAYS (ALTERNATING BETWEEN THE LEFT BREAST AND LEFT SHOULDER)
  11. PERCOCET [OXYCODONE HYDROCHLORIDE;OXYCODONE TEREPHTHALATE;PARACETAMOL] [Concomitant]
     Active Substance: ACETAMINOPHEN\OXYCODONE HYDROCHLORIDE\OXYCODONE TEREPHTHALATE
     Indication: PAIN MANAGEMENT
     Dosage: 1 DF, AS NEEDED (ONCE DAILY)
     Route: 048
  12. FENTANYL. [Concomitant]
     Active Substance: FENTANYL
     Dosage: 50 UG, UNK

REACTIONS (3)
  - Weight increased [Unknown]
  - Intentional product misuse [Unknown]
  - Body height decreased [Not Recovered/Not Resolved]
